FAERS Safety Report 8221948-6 (Version None)
Quarter: 2012Q1

REPORT INFORMATION
  Report Type: 
  Country: None (occurrence: None)
  Receive Date: 20120320
  Receipt Date: 20120315
  Transmission Date: 20120608
  Serious: Yes (Hospitalization)
  Sender: FDA-Public Use
  Company Number: US-B.I. PHARMACEUTICALS,INC./RIDGEFIELD-2011-BP-10689BP

PATIENT
  Sex: Female
  Weight: 83.46 kg

DRUGS (8)
  1. PRADAXA [Suspect]
     Route: 048
  2. BENICAR [Concomitant]
     Indication: HYPERTENSION
  3. VYTORIN [Concomitant]
     Indication: BLOOD CHOLESTEROL INCREASED
  4. LASIX [Concomitant]
  5. CLONIDINE [Concomitant]
  6. METFORMIN HCL [Concomitant]
  7. SYNTHROID [Concomitant]
     Indication: HYPOTHYROIDISM
  8. PRADAXA [Suspect]
     Indication: ATRIAL FIBRILLATION
     Dosage: 300 MG
     Route: 048
     Dates: start: 20100101, end: 20110101

REACTIONS (3)
  - PLEURISY [None]
  - PNEUMONIA [None]
  - PLEURAL HAEMORRHAGE [None]
